FAERS Safety Report 9884229 (Version 1)
Quarter: 2014Q1

REPORT INFORMATION
  Report Type: Spontaneous
  Country: US (occurrence: None)
  Receive Date: 20140207
  Receipt Date: 20140207
  Transmission Date: 20141002
  Serious: No
  Sender: FDA-Public Use
  Company Number: None

PATIENT
  Age: 36 Year
  Sex: Female
  Weight: 79.38 kg

DRUGS (1)
  1. LUPRON [Suspect]
     Indication: ENDOMETRIOSIS
     Dosage: INTO THE MUSCLE
     Dates: start: 20140116

REACTIONS (9)
  - Nausea [None]
  - Pain [None]
  - Tachycardia [None]
  - Hypertension [None]
  - Abasia [None]
  - Visual impairment [None]
  - Fatigue [None]
  - Activities of daily living impaired [None]
  - Refusal of treatment by patient [None]
